FAERS Safety Report 21358250 (Version 2)
Quarter: 2022Q4

REPORT INFORMATION
  Report Type: Report from Study
  Country: US (occurrence: US)
  Receive Date: 20220921
  Receipt Date: 20221006
  Transmission Date: 20230112
  Serious: Yes (Hospitalization)
  Sender: FDA-Public Use
  Company Number: US-TAKEDA-2022TUS065649

PATIENT
  Age: 60 Year
  Sex: Female
  Weight: 81.9 kg

DRUGS (2)
  1. BRIGATINIB [Suspect]
     Active Substance: BRIGATINIB
     Indication: Non-small cell lung cancer
     Dosage: 180 MILLIGRAM, QD
     Route: 048
     Dates: start: 20220823, end: 20220913
  2. BEVACIZUMAB [Suspect]
     Active Substance: BEVACIZUMAB
     Indication: Non-small cell lung cancer
     Dosage: 1219 MILLILITER
     Route: 042
     Dates: start: 20220830, end: 20220830

REACTIONS (1)
  - Infection [Not Recovered/Not Resolved]

NARRATIVE: CASE EVENT DATE: 20220914
